FAERS Safety Report 6141773-X (Version None)
Quarter: 2009Q2

REPORT INFORMATION
  Report Type: 
  Country: None (occurrence: None)
  Receive Date: 20090402
  Receipt Date: 20080825
  Transmission Date: 20091009
  Serious: No
  Sender: FDA-Public Use
  Company Number: US-ABBOTT-08P-163-0472203-00

PATIENT
  Sex: Female

DRUGS (3)
  1. LUPRON DEPOT [Suspect]
     Indication: UTERINE LEIOMYOMA
     Route: 050
  2. ESTROLTONE [Suspect]
     Indication: HORMONE REPLACEMENT THERAPY
     Route: 048
  3. ESTROLTONE [Suspect]
     Route: 048

REACTIONS (1)
  - FEELING HOT [None]
